FAERS Safety Report 20237172 (Version 2)
Quarter: 2022Q1

REPORT INFORMATION
  Report Type: Spontaneous
  Country: IT (occurrence: IT)
  Receive Date: 20211228
  Receipt Date: 20220216
  Transmission Date: 20220424
  Serious: Yes (Other)
  Sender: FDA-Public Use
  Company Number: IT-PFIZER INC-202101812085

PATIENT
  Age: 13 Year
  Sex: Male

DRUGS (1)
  1. ADALIMUMAB [Suspect]
     Active Substance: ADALIMUMAB
     Indication: Uveitis
     Dosage: UNK
     Dates: start: 201710

REACTIONS (3)
  - Nephropathy toxic [Unknown]
  - Haematuria [Recovering/Resolving]
  - Proteinuria [Recovering/Resolving]
